FAERS Safety Report 22758652 (Version 3)
Quarter: 2024Q2

REPORT INFORMATION
  Report Type: Report from Study
  Country: AR (occurrence: AR)
  Receive Date: 20230728
  Receipt Date: 20240409
  Transmission Date: 20240716
  Serious: Yes (Other)
  Sender: FDA-Public Use
  Company Number: AR-ABBVIE-5343177

PATIENT
  Age: 62 Year
  Sex: Male

DRUGS (4)
  1. RINVOQ [Suspect]
     Active Substance: UPADACITINIB
     Indication: Rheumatoid arthritis
     Dosage: FORM STRENGTH: 15 MILLIGRAM?STOP DATE TEXT: INTERRUPTED FOR 10 DAYS
     Route: 048
     Dates: start: 20211201
  2. RINVOQ [Suspect]
     Active Substance: UPADACITINIB
     Indication: Rheumatoid arthritis
     Dosage: 15 MILLIGRAM
     Route: 048
  3. RINVOQ [Suspect]
     Active Substance: UPADACITINIB
     Indication: Rheumatoid arthritis
     Dosage: 15 MILLIGRAM
     Route: 048
  4. RINVOQ [Suspect]
     Active Substance: UPADACITINIB
     Indication: Rheumatoid arthritis
     Dosage: 15 MILLIGRAM
     Route: 048
     Dates: start: 20240207, end: 20240221

REACTIONS (5)
  - Colon cancer [Recovered/Resolved]
  - Diarrhoea [Recovering/Resolving]
  - Frequent bowel movements [Recovering/Resolving]
  - Joint stiffness [Unknown]
  - Arthralgia [Recovered/Resolved]

NARRATIVE: CASE EVENT DATE: 20230201
